FAERS Safety Report 9433741 (Version 1)
Quarter: 2013Q3

REPORT INFORMATION
  Report Type: Spontaneous
  Country: FR (occurrence: FR)
  Receive Date: 20130731
  Receipt Date: 20130731
  Transmission Date: 20140515
  Serious: Yes (Hospitalization)
  Sender: FDA-Public Use
  Company Number: FR-UCBSA-092904

PATIENT
  Age: 15 Year
  Sex: Male

DRUGS (7)
  1. KEPPRA [Suspect]
     Indication: EPILEPSY
     Route: 048
     Dates: start: 201105, end: 201105
  2. MTX [Interacting]
     Indication: ACUTE LYMPHOCYTIC LEUKAEMIA
     Dosage: RECEIVED 7 INTRATHECAL INJECTIONS
     Route: 037
     Dates: end: 2011
  3. MTX [Interacting]
     Indication: ACUTE LYMPHOCYTIC LEUKAEMIA
     Dosage: DOSE : 5G/M2   ,RECEIVED 2 IV INFUSIONS
     Route: 042
     Dates: end: 2011
  4. CYTARABINE [Concomitant]
     Dates: start: 201105
  5. HYDROCORTISONE [Concomitant]
     Dates: start: 201105
  6. FOLINIC ACID [Concomitant]
     Dates: start: 201105
  7. SODIUM BICARBONATE AND G5 [Concomitant]
     Dates: start: 201105

REACTIONS (3)
  - Blood creatinine increased [Recovered/Resolved]
  - Drug level increased [Recovered/Resolved]
  - Drug interaction [Recovered/Resolved]
